FAERS Safety Report 25018280 (Version 1)
Quarter: 2025Q1

REPORT INFORMATION
  Report Type: Spontaneous
  Country: CA (occurrence: CA)
  Receive Date: 20250227
  Receipt Date: 20250227
  Transmission Date: 20250408
  Serious: Yes (Other)
  Sender: PFIZER
  Company Number: CA-PFIZER INC-202400255524

PATIENT
  Age: 56 Year
  Sex: Female

DRUGS (2)
  1. SULFASALAZINE [Suspect]
     Active Substance: SULFASALAZINE
     Indication: Rheumatoid arthritis
     Dosage: 1 G, 2X/DAY
     Dates: start: 2009
  2. ARAVA [Concomitant]
     Active Substance: LEFLUNOMIDE
     Route: 048
     Dates: start: 2011

REACTIONS (2)
  - Eyelid operation [Unknown]
  - Drug effect less than expected [Unknown]

NARRATIVE: CASE EVENT DATE: 20250218
